FAERS Safety Report 5270062-0 (Version None)
Quarter: 2007Q1

REPORT INFORMATION
  Report Type: 
  Country: None (occurrence: None)
  Receive Date: 20061214
  Receipt Date: 20060428
  Transmission Date: 20070707
  Serious: Yes (Hospitalization, Other)
  Sender: FDA-Public Use
  Company Number: 2006058919

PATIENT
  Age: 63 Year
  Sex: Male
  Weight: 99.7913 kg

DRUGS (1)
  1. BEXTRA [Suspect]
     Indication: ARTHRITIS
     Dosage: 10 MG, AS NEEDED
     Dates: start: 20021031

REACTIONS (9)
  - ASTHENIA [None]
  - BLOOD CHOLESTEROL INCREASED [None]
  - BRADYPHRENIA [None]
  - CEREBROVASCULAR ACCIDENT [None]
  - EMOTIONAL DISORDER [None]
  - HEMIPARESIS [None]
  - MALE SEXUAL DYSFUNCTION [None]
  - MUSCLE SPASMS [None]
  - VISUAL DISTURBANCE [None]
